FAERS Safety Report 14265358 (Version 3)
Quarter: 2019Q4

REPORT INFORMATION
  Report Type: Report from Study
  Country: US (occurrence: US)
  Receive Date: 20171208
  Receipt Date: 20191125
  Transmission Date: 20200122
  Serious: Yes (Other)
  Sender: FDA-Public Use
  Company Number: US-ARIAD PHARMACEUTICALS, INC-2017US008455

PATIENT
  Age: 20 Year
  Sex: Male

DRUGS (9)
  1. PROTEIN [Concomitant]
     Active Substance: PROTEIN
     Dosage: UNK
  2. TACROLIMUS. [Concomitant]
     Active Substance: TACROLIMUS
     Dosage: UNK
  3. PONATINIB [Suspect]
     Active Substance: PONATINIB
     Indication: CHRONIC MYELOID LEUKAEMIA
     Dosage: 30 MILLIGRAM, QD
     Route: 048
     Dates: start: 20150819
  4. PONATINIB [Suspect]
     Active Substance: PONATINIB
     Dosage: 15 MILLIGRAM, QD
     Route: 048
  5. URSODIOL. [Concomitant]
     Active Substance: URSODIOL
     Dosage: UNK
  6. PREDNISONE. [Concomitant]
     Active Substance: PREDNISONE
     Dosage: 10 MG, BID
  7. ACYCLOVIR                          /00587301/ [Concomitant]
     Active Substance: ACYCLOVIR
     Dosage: UNK
  8. ATOVAQUONE. [Concomitant]
     Active Substance: ATOVAQUONE
     Indication: PROPHYLAXIS
     Dosage: UNK
  9. SIROLIMUS. [Concomitant]
     Active Substance: SIROLIMUS
     Dosage: 0.5 MG, TID

REACTIONS (7)
  - Bone marrow transplant [Unknown]
  - Chronic myeloid leukaemia [Unknown]
  - Eye discharge [Recovered/Resolved]
  - Vision blurred [Unknown]
  - Neutropenia [Unknown]
  - Dry eye [Unknown]
  - Graft versus host disease in skin [Unknown]

NARRATIVE: CASE EVENT DATE: 201706
